FAERS Safety Report 19154738 (Version 1)
Quarter: 2021Q2

REPORT INFORMATION
  Report Type: Spontaneous
  Country: US (occurrence: US)
  Receive Date: 20210419
  Receipt Date: 20210419
  Transmission Date: 20210717
  Serious: No
  Sender: FDA-Public Use
  Company Number: US-JNJFOC-20210413134

PATIENT
  Age: 27 Year
  Sex: Male

DRUGS (1)
  1. MENS ROGAINE EXTRA STRENGTH [Suspect]
     Active Substance: MINOXIDIL
     Indication: ALOPECIA
     Dosage: ONE PUMP OF FOAM AND RUBBED INTO THE CROWN OF MY HEAD
     Route: 061
     Dates: start: 20210301

REACTIONS (5)
  - Hypersensitivity [Recovered/Resolved]
  - Blister [Recovered/Resolved]
  - Alopecia [Recovered/Resolved]
  - Incorrect dose administered [Unknown]
  - Tinea pedis [Recovered/Resolved]

NARRATIVE: CASE EVENT DATE: 20210301
